FAERS Safety Report 6298257-8 (Version None)
Quarter: 2009Q3

REPORT INFORMATION
  Report Type: 
  Country: None (occurrence: None)
  Receive Date: 20090805
  Receipt Date: 20090803
  Transmission Date: 20100115
  Serious: Yes (Hospitalization)
  Sender: FDA-Public Use
  Company Number: US-GILEAD-2009-0022826

PATIENT
  Sex: Female

DRUGS (21)
  1. LETAIRIS [Suspect]
     Indication: PULMONARY ARTERIAL HYPERTENSION
     Route: 048
  2. LETAIRIS [Suspect]
     Route: 048
  3. LETAIRIS [Suspect]
     Route: 048
     Dates: start: 20090114
  4. LOTENSIN [Concomitant]
  5. TOPROL-XL [Concomitant]
  6. AMLODIPINE [Concomitant]
  7. ASPIRIN [Concomitant]
  8. PLAVIX [Concomitant]
  9. ALBUTEROL [Concomitant]
  10. CELLCEPT [Concomitant]
  11. PREDNISONE [Concomitant]
  12. SERTRALINE [Concomitant]
  13. ALPRAZOLAM [Concomitant]
  14. ACTONEL [Concomitant]
  15. LEVOTHYROXINE SODIUM [Concomitant]
  16. ULTRACET [Concomitant]
  17. LORATADINE [Concomitant]
  18. ACIPHEX [Concomitant]
  19. AMITRIPTYLINE HCL [Concomitant]
  20. OMEPRAZOLE [Concomitant]
  21. PROTONIX [Concomitant]

REACTIONS (3)
  - CARDIAC FAILURE CONGESTIVE [None]
  - ELECTROCARDIOGRAM CHANGE [None]
  - OEDEMA [None]
